FAERS Safety Report 7159107-0 (Version None)
Quarter: 2010Q4

REPORT INFORMATION
  Report Type: 
  Country: None (occurrence: None)
  Receive Date: 20101214
  Receipt Date: 20101206
  Transmission Date: 20110411
  Serious: Yes (Hospitalization)
  Sender: FDA-Public Use
  Company Number: FR-SANOFI-AVENTIS-2010SA073843

PATIENT
  Age: 79 Year
  Sex: Male
  Weight: 81.4 kg

DRUGS (12)
  1. LASIX [Suspect]
     Route: 048
  2. VISIPAQUE [Interacting]
     Route: 013
     Dates: start: 20091229
  3. TAREG [Interacting]
     Route: 048
  4. ISOPTIN [Concomitant]
  5. AMLOR [Concomitant]
     Route: 048
  6. PLAVIX [Concomitant]
     Route: 048
  7. TAHOR [Concomitant]
     Route: 048
  8. ESOMEPRAZOLE [Concomitant]
  9. DIFFU K [Concomitant]
     Route: 048
  10. FERROUS SULFATE [Concomitant]
  11. HUMALOG [Concomitant]
  12. EPOETIN BETA [Concomitant]

REACTIONS (5)
  - ACUTE PULMONARY OEDEMA [None]
  - DRUG INTERACTION [None]
  - HAEMODIALYSIS [None]
  - RENAL FAILURE ACUTE [None]
  - RENAL TUBULAR NECROSIS [None]
